FAERS Safety Report 9396674 (Version 1)
Quarter: 2013Q3

REPORT INFORMATION
  Report Type: Spontaneous
  Country: CA (occurrence: CA)
  Receive Date: 20130712
  Receipt Date: 20130712
  Transmission Date: 20140515
  Serious: Yes (Hospitalization)
  Sender: FDA-Public Use
  Company Number: CA-AMGEN-CANSP2013047949

PATIENT
  Age: 59 Year
  Sex: Female

DRUGS (1)
  1. NEUPOGEN [Suspect]
     Indication: PLASMA CELL MYELOMA
     Dosage: 1ML/300MCG
     Route: 065
     Dates: start: 20120830

REACTIONS (1)
  - Febrile neutropenia [Recovering/Resolving]
